FAERS Safety Report 14600913 (Version 7)
Quarter: 2019Q2

REPORT INFORMATION
  Report Type: Report from Study
  Country: JP (occurrence: JP)
  Receive Date: 20180305
  Receipt Date: 20190509
  Transmission Date: 20190711
  Serious: Yes (Life-Threatening, Hospitalization, Other)
  Sender: FDA-Public Use
  Company Number: JP-ACTELION-A-CH2018-168627

PATIENT
  Age: 76 Year
  Sex: Male

DRUGS (41)
  1. PLAVIX [Concomitant]
     Active Substance: CLOPIDOGREL BISULFATE
  2. DIART [Concomitant]
     Active Substance: AZOSEMIDE
  3. BELSOMRA [Concomitant]
     Active Substance: SUVOREXANT
  4. RISPERDAL [Concomitant]
     Active Substance: RISPERIDONE
  5. SLOW-K [Concomitant]
     Active Substance: POTASSIUM CHLORIDE
  6. INOVAN [Concomitant]
     Active Substance: DOPAMINE HYDROCHLORIDE
  7. DOBUPUM [Concomitant]
     Active Substance: DOBUTAMINE HYDROCHLORIDE
  8. PREDNISOLONE. [Concomitant]
     Active Substance: PREDNISOLONE
     Dosage: UNK
     Dates: start: 20161207
  9. OPSUMIT [Suspect]
     Active Substance: MACITENTAN
     Indication: PULMONARY ARTERIAL HYPERTENSION
     Dosage: 10 MG, QD
     Route: 048
     Dates: start: 20161115
  10. SAMSCA [Concomitant]
     Active Substance: TOLVAPTAN
  11. QUETIAPINE. [Concomitant]
     Active Substance: QUETIAPINE
  12. SOLDACTONE [Concomitant]
     Active Substance: CANRENOATE POTASSIUM
  13. UPTRAVI [Concomitant]
     Active Substance: SELEXIPAG
  14. JANUVIA [Concomitant]
     Active Substance: SITAGLIPTIN PHOSPHATE
  15. LASIX [Suspect]
     Active Substance: FUROSEMIDE
     Indication: RIGHT VENTRICULAR FAILURE
     Dosage: 2 ML, QD
     Route: 042
     Dates: start: 20161212, end: 20161222
  16. SENNOSIDE [Concomitant]
     Active Substance: SENNOSIDES
  17. PITAVASTATIN CA [Concomitant]
     Active Substance: PITAVASTATIN CALCIUM
  18. SPIRONOLACTONE. [Concomitant]
     Active Substance: SPIRONOLACTONE
  19. KALIMATE [Concomitant]
     Active Substance: CALCIUM POLYSTYRENE SULFONATE
  20. BROTIZOLAM [Concomitant]
     Active Substance: BROTIZOLAM
  21. HUMULIN R [Suspect]
     Active Substance: INSULIN HUMAN
     Dosage: 10 ML, QD
     Route: 042
     Dates: start: 20161228, end: 20161228
  22. LIXIANA [Concomitant]
     Active Substance: EDOXABAN TOSYLATE
  23. ULTIBRO [Concomitant]
     Active Substance: GLYCOPYRRONIUM\INDACATEROL
  24. MAGNESIUM OXIDE. [Concomitant]
     Active Substance: MAGNESIUM OXIDE
  25. TANATRIL [Concomitant]
     Active Substance: IMIDAPRIL
  26. CALONAL [Concomitant]
     Active Substance: ACETAMINOPHEN
  27. CANDESARTAN. [Concomitant]
     Active Substance: CANDESARTAN
  28. BIO-THREE [Concomitant]
     Active Substance: HERBALS
  29. TAKELDA [Concomitant]
     Active Substance: ASPIRIN\LANSOPRAZOLE
  30. MUCOSOLVAN [Concomitant]
     Active Substance: AMBROXOL HYDROCHLORIDE
  31. REVATIO [Concomitant]
     Active Substance: SILDENAFIL CITRATE
  32. OXYGEN. [Concomitant]
     Active Substance: OXYGEN
  33. VENTAVIS [Suspect]
     Active Substance: ILOPROST
     Indication: PULMONARY ARTERIAL HYPERTENSION
     Dosage: 2.5 ?G, Q4HRS
     Route: 055
     Dates: start: 20161125, end: 20161205
  34. HUMULIN R [Suspect]
     Active Substance: INSULIN HUMAN
     Indication: TYPE 2 DIABETES MELLITUS
     Dosage: 10 ML, QD
     Route: 042
     Dates: start: 20161211, end: 20161223
  35. JARDIANCE [Concomitant]
     Active Substance: EMPAGLIFLOZIN
  36. BISOPROLOL [Concomitant]
     Active Substance: BISOPROLOL
  37. AMLODIPINE [Concomitant]
     Active Substance: AMLODIPINE BESYLATE
  38. CARBOCISTEINE [Concomitant]
     Active Substance: CARBOCYSTEINE
  39. MIYA-BM [Concomitant]
     Active Substance: CLOSTRIDIUM BUTYRICUM SPORES STRAIN M-55
  40. ASPARA POTASSIUM [Concomitant]
     Active Substance: POTASSIUM ASPARTATE
  41. SUGLAT [Concomitant]
     Active Substance: IPRAGLIFLOZIN L-PROLINE

REACTIONS (11)
  - Pneumonia [Recovering/Resolving]
  - Haemoptysis [Recovering/Resolving]
  - Right ventricular failure [Recovering/Resolving]
  - Hypokalaemia [Recovering/Resolving]
  - Respiratory tract haemorrhage [Recovering/Resolving]
  - Respiratory tract infection [Recovering/Resolving]
  - Cough [Recovering/Resolving]
  - Pyrexia [Recovering/Resolving]
  - Acute right ventricular failure [Recovering/Resolving]
  - Pneumonia influenzal [Recovering/Resolving]
  - Mechanical ventilation [Unknown]

NARRATIVE: CASE EVENT DATE: 20161203
